FAERS Safety Report 22848181 (Version 5)
Quarter: 2023Q4

REPORT INFORMATION
  Report Type: Spontaneous
  Country: PL (occurrence: PL)
  Receive Date: 20230822
  Receipt Date: 20231023
  Transmission Date: 20240110
  Serious: Yes (Other)
  Sender: FDA-Public Use
  Company Number: PL-TOLMAR, INC.-19PL000839

PATIENT
  Age: 75 Year
  Sex: Male

DRUGS (8)
  1. ELIGARD [Suspect]
     Active Substance: LEUPROLIDE ACETATE
     Indication: Prostate cancer
     Dosage: UNK
  2. ENZALUTAMIDE [Suspect]
     Active Substance: ENZALUTAMIDE
     Indication: Prostate cancer
     Dosage: 160 MG, QD
     Dates: start: 201411
  3. ENZALUTAMIDE [Suspect]
     Active Substance: ENZALUTAMIDE
     Dosage: 120 MG, QD
  4. ENZALUTAMIDE [Suspect]
     Active Substance: ENZALUTAMIDE
     Dosage: 80 MG, QD
  5. BICALUTAMIDE [Suspect]
     Active Substance: BICALUTAMIDE
     Indication: Prostate cancer
     Dosage: UNK
  6. UNSPECIFIED INGREDIENT [Suspect]
     Active Substance: UNSPECIFIED INGREDIENT
     Indication: Product used for unknown indication
     Dosage: UNK
  7. DOCETAXEL [Concomitant]
     Active Substance: DOCETAXEL
     Indication: Product used for unknown indication
  8. UNSPECIFIED INGREDIENT [Concomitant]
     Active Substance: UNSPECIFIED INGREDIENT
     Indication: Product used for unknown indication
     Dosage: UNK

REACTIONS (17)
  - Ventricular arrhythmia [Unknown]
  - Circulatory collapse [Unknown]
  - Cardiac failure [Unknown]
  - Embolism [Unknown]
  - Humerus fracture [Unknown]
  - Myocardial ischaemia [Unknown]
  - Prostate cancer [Recovered/Resolved]
  - Coronary artery disease [Unknown]
  - Hypertension [Recovered/Resolved]
  - Metastases to lymph nodes [Recovered/Resolved]
  - Muscle atrophy [Unknown]
  - Hot flush [Unknown]
  - Depression [Unknown]
  - Drug ineffective [Unknown]
  - Asthenia [Unknown]
  - Gynaecomastia [Unknown]
  - Prostatic specific antigen increased [Not Recovered/Not Resolved]

NARRATIVE: CASE EVENT DATE: 20140101
